FAERS Safety Report 5946031-1 (Version None)
Quarter: 2008Q4

REPORT INFORMATION
  Report Type: 
  Country: None (occurrence: None)
  Receive Date: 20081110
  Receipt Date: 20081103
  Transmission Date: 20090506
  Serious: Yes (Other)
  Sender: FDA-Public Use
  Company Number: GB-NOVOPROD-271841

PATIENT
  Sex: Female
  Weight: 60 kg

DRUGS (2)
  1. NOVORAPID [Suspect]
     Indication: DIABETES MELLITUS
     Dosage: 24 IU, QD
     Route: 058
  2. LEVEMIR [Suspect]
     Indication: DIABETES MELLITUS
     Dosage: 26 IU, QD
     Route: 058

REACTIONS (6)
  - BLOOD GLUCOSE INCREASED [None]
  - CAESAREAN SECTION [None]
  - HYPERGLYCAEMIA [None]
  - PREGNANCY [None]
  - PREMATURE BABY [None]
  - PREMATURE RUPTURE OF MEMBRANES [None]
